FAERS Safety Report 5278034-7 (Version None)
Quarter: 2007Q1

REPORT INFORMATION
  Report Type: 
  Country: None (occurrence: None)
  Receive Date: 20070321
  Receipt Date: 20070306
  Transmission Date: 20070707
  Serious: Yes (Hospitalization)
  Sender: FDA-Public Use
  Company Number: 2007AL000950

PATIENT
  Age: 81 Year
  Sex: Female

DRUGS (5)
  1. METFORMIN HYDROCHLORIDE [Suspect]
     Indication: DIABETES MELLITUS NON-INSULIN-DEPENDENT
     Dosage: 3 GM; QD; UNKNOWN
  2. GLIMEPIRIDE [Concomitant]
  3. LISINOPRIL [Concomitant]
  4. HYDROCHLOROTHIAZIDE [Concomitant]
  5. CALCIUM CHANNEL ANTAGONIST - UNSPECIFIED [Concomitant]

REACTIONS (11)
  - ABDOMINAL PAIN [None]
  - DIARRHOEA [None]
  - HAEMATEMESIS [None]
  - HAEMODIALYSIS [None]
  - HYPERVENTILATION [None]
  - HYPOTENSION [None]
  - HYPOTHERMIA [None]
  - LACTIC ACIDOSIS [None]
  - MALAISE [None]
  - RECTAL HAEMORRHAGE [None]
  - VOMITING [None]
